FAERS Safety Report 13654501 (Version 1)
Quarter: 2017Q2

REPORT INFORMATION
  Report Type: Spontaneous
  Country: PL (occurrence: PL)
  Receive Date: 20170615
  Receipt Date: 20170615
  Transmission Date: 20170830
  Serious: Yes (Death, Other)
  Sender: FDA-Public Use
  Company Number: PL-CORDEN PHARMA LATINA S.P.A.-PL-2017COR000145

PATIENT
  Age: 7 Year
  Sex: Male

DRUGS (7)
  1. CARBOPLATIN. [Suspect]
     Active Substance: CARBOPLATIN
     Indication: NEUROECTODERMAL NEOPLASM
     Dosage: UNK
  2. IFOSFAMIDE. [Suspect]
     Active Substance: IFOSFAMIDE
     Indication: NEUROECTODERMAL NEOPLASM
     Dosage: UNK, CUMULATIVE DOSE OF 78.0 G/M2
  3. VINCRISTINE [Suspect]
     Active Substance: VINCRISTINE
     Indication: NEUROECTODERMAL NEOPLASM
     Dosage: UNK
  4. ACTINOMYCIN D [Suspect]
     Active Substance: DACTINOMYCIN
     Indication: NEUROECTODERMAL NEOPLASM
     Dosage: UNK
  5. CYCLOPHOSPHAMIDE. [Suspect]
     Active Substance: CYCLOPHOSPHAMIDE
     Indication: NEUROECTODERMAL NEOPLASM
     Dosage: UNK, CUMULATIVE DOSE OF 27.2 G/M2
  6. ETOPOSIDE. [Concomitant]
     Active Substance: ETOPOSIDE
     Indication: NEUROECTODERMAL NEOPLASM
     Dosage: UNK, CUMULATIVE DOSE 4.05 G/M2
  7. ADRIAMYCIN [Suspect]
     Active Substance: DOXORUBICIN HYDROCHLORIDE
     Indication: NEUROECTODERMAL NEOPLASM
     Dosage: UNK

REACTIONS (1)
  - Acute myeloid leukaemia [Fatal]
